FAERS Safety Report 6431442-0 (Version None)
Quarter: 2009Q4

REPORT INFORMATION
  Report Type: 
  Country: None (occurrence: None)
  Receive Date: 20091106
  Receipt Date: 20091022
  Transmission Date: 20100525
  Serious: Yes (Hospitalization)
  Sender: FDA-Public Use
  Company Number: FR-GENENTECH-293398

PATIENT
  Sex: Female

DRUGS (12)
  1. BLINDED BEVACIZUMAB [Suspect]
     Indication: DIFFUSE LARGE B-CELL LYMPHOMA
     Dosage: 580 MG, Q2W
     Route: 042
     Dates: start: 20090814, end: 20091009
  2. CYCLOPHOSPHAMIDE [Suspect]
     Indication: DIFFUSE LARGE B-CELL LYMPHOMA
     Dosage: 580 MG, Q2W
     Route: 042
     Dates: start: 20090814, end: 20091009
  3. DOXORUBICIN HCL [Suspect]
     Indication: DIFFUSE LARGE B-CELL LYMPHOMA
     Dosage: 580 MG, Q2W
     Route: 042
     Dates: start: 20090814, end: 20091009
  4. BLINDED PLACEBO [Suspect]
     Indication: DIFFUSE LARGE B-CELL LYMPHOMA
     Dosage: 580 MG, Q2W
     Route: 042
     Dates: start: 20090814, end: 20091009
  5. PREDNISONE TAB [Suspect]
     Indication: DIFFUSE LARGE B-CELL LYMPHOMA
     Dosage: 580 MG, Q2W
     Route: 042
     Dates: start: 20090814, end: 20091009
  6. BLINDED RITUXIMAB [Suspect]
     Indication: DIFFUSE LARGE B-CELL LYMPHOMA
     Dosage: 580 MG, Q2W
     Route: 042
     Dates: start: 20090814, end: 20091009
  7. VINCRISTINE [Suspect]
     Indication: DIFFUSE LARGE B-CELL LYMPHOMA
     Dosage: 580 MG, Q2W
     Route: 042
     Dates: start: 20090814, end: 20091009
  8. RITUXIMAB [Suspect]
     Indication: DIFFUSE LARGE B-CELL LYMPHOMA
     Dosage: 600 MG, Q2W
     Route: 050
     Dates: start: 20090814, end: 20091009
  9. CYCLOPHOSPHAMIDE [Suspect]
     Indication: DIFFUSE LARGE B-CELL LYMPHOMA
     Dosage: 1230 MG, Q2W
     Route: 042
     Dates: start: 20090814, end: 20091009
  10. VINCRISTINE [Suspect]
     Indication: DIFFUSE LARGE B-CELL LYMPHOMA
     Dosage: 2 MG, Q2W
     Route: 042
     Dates: start: 20090814, end: 20091009
  11. DOXORUBICIN HCL [Suspect]
     Indication: DIFFUSE LARGE B-CELL LYMPHOMA
     Dosage: 82 MG, Q2W
     Route: 042
     Dates: start: 20090814, end: 20091009
  12. PREDNISOLONE [Suspect]
     Indication: DIFFUSE LARGE B-CELL LYMPHOMA
     Dosage: 71 MG, Q2W
     Route: 048
     Dates: start: 20090814, end: 20091013

REACTIONS (1)
  - FEBRILE NEUTROPENIA [None]
